FAERS Safety Report 7611825-3 (Version None)
Quarter: 2011Q3

REPORT INFORMATION
  Report Type: 
  Country: None (occurrence: None)
  Receive Date: 20110715
  Receipt Date: 20110704
  Transmission Date: 20111222
  Serious: Yes (Hospitalization, Other)
  Sender: FDA-Public Use
  Company Number: CA-NOVOPROD-327441

PATIENT
  Age: 50 Year
  Sex: Male
  Weight: 120 kg

DRUGS (8)
  1. VICTOZA [Suspect]
     Indication: OBESITY
  2. ELASE                              /00154301/ [Concomitant]
     Dosage: 81 MG, QD
  3. EZETIMIBE [Concomitant]
     Dosage: 10 MG, QD
  4. VICTOZA [Suspect]
     Indication: DIABETES MELLITUS
     Dosage: UNK
     Route: 065
  5. CARVEDILOL [Concomitant]
     Dosage: 25 MG, BID
  6. CLOPIDOGREL [Concomitant]
     Dosage: 75 MG, QD
  7. FUROSEMIDE [Concomitant]
     Dosage: 80 MG, QD
  8. AMLODIPINE [Concomitant]
     Dosage: 5 MG, QD

REACTIONS (2)
  - ATRIAL FIBRILLATION [None]
  - CARDIOGENIC SHOCK [None]
